FAERS Safety Report 10208030 (Version 3)
Quarter: 2014Q2

REPORT INFORMATION
  Report Type: Report from Study
  Country: JP (occurrence: JP)
  Receive Date: 20140530
  Receipt Date: 20140616
  Transmission Date: 20141212
  Serious: No
  Sender: FDA-Public Use
  Company Number: JP-ABBVIE-13X-087-1138702-00

PATIENT
  Age: 65 Year
  Sex: Male

DRUGS (8)
  1. LIPACREON CAPSULES 150MG [Suspect]
     Indication: PANCREATIC INSUFFICIENCY
     Route: 048
     Dates: start: 20121026
  2. LECTISOL [Suspect]
     Indication: ECZEMA NUMMULAR
     Dates: start: 20121211, end: 20130110
  3. LAFUTIDINE [Concomitant]
     Indication: ANASTOMOTIC ULCER
     Dates: end: 20110915
  4. LAFUTIDINE [Concomitant]
     Indication: PROPHYLAXIS
  5. BROTIZOLAM [Concomitant]
     Indication: PROPHYLAXIS
     Route: 048
  6. BROTIZOLAM [Concomitant]
     Indication: INSOMNIA
  7. LANSOPRAZOLE [Concomitant]
     Indication: PROPHYLAXIS AGAINST GASTROINTESTINAL ULCER
     Route: 048
     Dates: start: 20110916, end: 20121227
  8. ESOMEPRAZOLE MAGNESIUM [Concomitant]
     Indication: PROPHYLAXIS AGAINST GASTROINTESTINAL ULCER
     Route: 048
     Dates: start: 20121228

REACTIONS (2)
  - Anaemia [Not Recovered/Not Resolved]
  - Herpes zoster [Recovered/Resolved]
